FAERS Safety Report 20289097 (Version 1)
Quarter: 2022Q1

REPORT INFORMATION
  Report Type: Spontaneous
  Country: US (occurrence: US)
  Receive Date: 20220104
  Receipt Date: 20220104
  Transmission Date: 20220424
  Serious: No
  Sender: FDA-Public Use
  Company Number: US-009507513-2112USA008420

PATIENT
  Age: 77 Year
  Sex: Female

DRUGS (5)
  1. VERQUVO [Suspect]
     Active Substance: VERICIGUAT
     Indication: Cardiac failure
     Dosage: 10 MG, DAILY
     Route: 048
  2. ENTRESTO [Concomitant]
     Active Substance: SACUBITRIL\VALSARTAN
  3. COREG [Concomitant]
     Active Substance: CARVEDILOL
  4. CANRENOATE POTASSIUM [Concomitant]
     Active Substance: CANRENOATE POTASSIUM
  5. BUMEX [Concomitant]
     Active Substance: BUMETANIDE

REACTIONS (1)
  - Anaemia [Not Recovered/Not Resolved]
